FAERS Safety Report 9523500 (Version 2)
Quarter: 2013Q3

REPORT INFORMATION
  Report Type: Spontaneous
  Country: GB (occurrence: GB)
  Receive Date: 20130913
  Receipt Date: 20130913
  Transmission Date: 20140515
  Serious: Yes (Other)
  Sender: FDA-Public Use
  Company Number: GB-ABBOTT-13P-167-1044079-00

PATIENT
  Sex: Female
  Weight: 90 kg

DRUGS (3)
  1. HUMIRA [Suspect]
     Indication: CROHN^S DISEASE
     Route: 058
     Dates: start: 201201
  2. FOLIC ACID [Concomitant]
     Indication: PREGNANCY
     Route: 048
     Dates: start: 20120928
  3. SANDO-K [Concomitant]
     Indication: BLOOD POTASSIUM DECREASED
     Route: 048
     Dates: start: 20130325, end: 20130507

REACTIONS (5)
  - Prolonged labour [Unknown]
  - Blood potassium decreased [Unknown]
  - Crohn^s disease [Unknown]
  - Crohn^s disease [Unknown]
  - Escherichia urinary tract infection [Unknown]
